FAERS Safety Report 6302997-1 (Version None)
Quarter: 2009Q3

REPORT INFORMATION
  Report Type: 
  Country: None (occurrence: None)
  Receive Date: 20090810
  Receipt Date: 20090731
  Transmission Date: 20100115
  Serious: Yes (Other)
  Sender: FDA-Public Use
  Company Number: US-AMGEN-QUU358253

PATIENT
  Sex: Female

DRUGS (1)
  1. ENBREL [Suspect]
     Indication: RHEUMATOID ARTHRITIS
     Route: 058
     Dates: start: 19971001

REACTIONS (4)
  - PLATELET COUNT DECREASED [None]
  - RETINITIS [None]
  - RHEUMATOID NODULE [None]
  - SKIN NODULE [None]
